FAERS Safety Report 10249401 (Version 1)
Quarter: 2014Q2

REPORT INFORMATION
  Report Type: Spontaneous
  Country: US (occurrence: None)
  Receive Date: 20140522
  Receipt Date: 20140522
  Transmission Date: 20141212
  Serious: No
  Sender: FDA-Public Use
  Company Number: 1000060361

PATIENT
  Age: 71 Year
  Sex: Male

DRUGS (5)
  1. TUDORZA PRESSAIR (ACLIDINIUM BROMIDE) (400 MICROGRAM, POWDER) [Suspect]
     Route: 055
     Dates: start: 20140305
  2. ATENOLOL [Concomitant]
  3. BABY ASPIRIN (ACETYLSALICYLIC ACID) [Concomitant]
  4. NIACIN (NICOTINIC ACID) [Concomitant]
  5. VIT D3 (COLECALCIFEROL) [Concomitant]

REACTIONS (1)
  - Oropharyngeal discomfort [None]
